FAERS Safety Report 24235007 (Version 1)
Quarter: 2024Q3

REPORT INFORMATION
  Report Type: Spontaneous
  Country: US (occurrence: None)
  Receive Date: 20240821
  Receipt Date: 20240821
  Transmission Date: 20241016
  Serious: No
  Sender: Public
  Company Number: None

PATIENT
  Age: 45 Year
  Sex: Female
  Weight: 79.83 kg

DRUGS (1)
  1. ENBREL [Suspect]
     Active Substance: BENZYL ALCOHOL\ETANERCEPT
     Indication: Psoriatic arthropathy
     Dosage: FREQUENCY : AS DIRECTED;?
     Route: 058
     Dates: start: 202404

REACTIONS (2)
  - COVID-19 [None]
  - Therapy interrupted [None]
